FAERS Safety Report 8507044-9 (Version None)
Quarter: 2012Q3

REPORT INFORMATION
  Report Type: 
  Country: None (occurrence: None)
  Receive Date: 20120712
  Receipt Date: 20120629
  Transmission Date: 20120928
  Serious: Yes (Other)
  Sender: FDA-Public Use
  Company Number: GB-SANOFI-AVENTIS-2012SA046760

PATIENT

DRUGS (1)
  1. JEVTANA KIT [Suspect]
     Route: 042

REACTIONS (1)
  - EXTRAVASATION [None]
